FAERS Safety Report 6369975-8 (Version None)
Quarter: 2009Q3

REPORT INFORMATION
  Report Type: 
  Country: None (occurrence: None)
  Receive Date: 20090923
  Receipt Date: 20070820
  Transmission Date: 20100115
  Serious: Yes (Hospitalization)
  Sender: FDA-Public Use
  Company Number: US-ASTRAZENECA-2006UW07696

PATIENT
  Age: 11187 Day
  Sex: Female
  Weight: 70.8 kg

DRUGS (26)
  1. SEROQUEL [Suspect]
     Indication: BIPOLAR DISORDER
     Route: 048
     Dates: start: 20051001, end: 20060501
  2. SEROQUEL [Suspect]
     Indication: DEPRESSION
     Route: 048
     Dates: start: 20051001, end: 20060501
  3. SEROQUEL [Suspect]
     Route: 048
     Dates: start: 20040224
  4. SEROQUEL [Suspect]
     Route: 048
     Dates: start: 20040224
  5. GLUCOPHAGE [Concomitant]
  6. LEXAPRO [Concomitant]
  7. XANAX [Concomitant]
  8. DEPAKOTE [Concomitant]
  9. RISPERDAL [Concomitant]
  10. CYCLOBENZAPRINE [Concomitant]
  11. PARACETAMOL [Concomitant]
  12. AMARYL [Concomitant]
  13. INSULIN [Concomitant]
  14. LITHIUM [Concomitant]
  15. DICYCLOMINE [Concomitant]
  16. FLUOXETINE [Concomitant]
  17. LAMICTAL [Concomitant]
  18. FLUCONAZOLE [Concomitant]
  19. NYSTATIN [Concomitant]
  20. ORTHO TRI-CYCLEN [Concomitant]
  21. PHENERGAN [Concomitant]
  22. TRILEPTAL [Concomitant]
  23. CLOTRIMAZOLE [Concomitant]
  24. BETAMETHASONE [Concomitant]
  25. DICLOFENAC [Concomitant]
  26. OLANZAPINE [Concomitant]

REACTIONS (3)
  - DIABETES MELLITUS [None]
  - DIABETES MELLITUS INADEQUATE CONTROL [None]
  - GLYCOSURIA [None]
